FAERS Safety Report 7027365-9 (Version None)
Quarter: 2010Q4

REPORT INFORMATION
  Report Type: 
  Country: None (occurrence: None)
  Receive Date: 20101004
  Receipt Date: 20100925
  Transmission Date: 20110411
  Serious: Yes (Disabling, Other)
  Sender: FDA-Public Use
  Company Number: PHHO2010BR14071

PATIENT
  Sex: Male
  Weight: 64.9 kg

DRUGS (8)
  1. NEORAL [Suspect]
     Indication: RENAL TRANSPLANT
     Dosage: 50 MG, BID
     Route: 048
     Dates: start: 20100121, end: 20100905
  2. NEORAL [Suspect]
     Dosage: NO TREATMENT
     Dates: start: 20100906, end: 20100907
  3. NEORAL [Suspect]
     Dosage: 50 MG, BID
     Route: 048
     Dates: start: 20100908
  4. CERTICAN [Suspect]
     Indication: RENAL TRANSPLANT
     Dosage: 1 MG, BID
     Route: 048
     Dates: start: 20100121, end: 20100905
  5. CERTICAN [Suspect]
     Dosage: NO TREATMENT
     Dates: start: 20100906, end: 20100907
  6. CERTICAN [Suspect]
     Dosage: 1 MG, BID
     Route: 048
     Dates: start: 20100908, end: 20100913
  7. PREDNISONE [Concomitant]
  8. MYCOPHENOLATE SODIUM [Concomitant]

REACTIONS (7)
  - ARTHRALGIA [None]
  - ARTHROPATHY [None]
  - BONE LESION [None]
  - BONE MARROW OEDEMA [None]
  - DIARRHOEA [None]
  - GAIT DISTURBANCE [None]
  - PAIN [None]
